FAERS Safety Report 8036447-4 (Version None)
Quarter: 2012Q1

REPORT INFORMATION
  Report Type: 
  Country: None (occurrence: None)
  Receive Date: 20120111
  Receipt Date: 20111228
  Transmission Date: 20120608
  Serious: Yes (Death)
  Sender: FDA-Public Use
  Company Number: US-UCBSA-049038

PATIENT
  Age: 57 Year
  Sex: Male

DRUGS (5)
  1. PSEUDOEPHEDRINE HCL [Suspect]
     Route: 048
  2. ACETAMINOPHEN AND HYDROCODONE BITARTRATE [Suspect]
     Route: 048
  3. AMITRIPTYLINE HCL [Suspect]
     Route: 048
  4. LAXATIVE (STIMULANT) [Suspect]
     Route: 048
  5. SKELETAL MUSCLE RELAXANT [Suspect]
     Route: 048

REACTIONS (1)
  - DRUG ABUSE [None]
